FAERS Safety Report 5279693-5 (Version None)
Quarter: 2007Q1

REPORT INFORMATION
  Report Type: 
  Country: None (occurrence: None)
  Receive Date: 20070323
  Receipt Date: 20070306
  Transmission Date: 20070707
  Serious: Yes (Hospitalization)
  Sender: FDA-Public Use
  Company Number: USPFP-S-20070001

PATIENT
  Age: 58 Year
  Sex: Male

DRUGS (2)
  1. NAVELBINE [Suspect]
     Indication: NEOPLASM MALIGNANT
     Dates: start: 20060609
  2. CISPLATIN [Suspect]
     Indication: NEOPLASM MALIGNANT
     Dates: start: 20060609

REACTIONS (3)
  - ANOREXIA [None]
  - DEHYDRATION [None]
  - NAUSEA [None]
